FAERS Safety Report 9742583 (Version 1)
Quarter: 2013Q4

REPORT INFORMATION
  Report Type: Spontaneous
  Country: US (occurrence: US)
  Receive Date: 20131210
  Receipt Date: 20131210
  Transmission Date: 20140711
  Serious: No
  Sender: FDA-Public Use
  Company Number: US-GILEAD-2009-0024587

PATIENT
  Sex: Female
  Weight: 58.97 kg

DRUGS (15)
  1. LETAIRIS [Suspect]
     Indication: PULMONARY ARTERIAL HYPERTENSION
     Route: 048
     Dates: start: 20090602
  2. FOSAMAX [Concomitant]
  3. PROTONIX [Concomitant]
  4. AMBIEN [Concomitant]
  5. LASIX [Concomitant]
  6. ROPINIROLE HCL [Concomitant]
  7. COUMADIN [Concomitant]
  8. ENALAPRIL MALEATE [Concomitant]
  9. LOVASTATIN [Concomitant]
  10. BISOPROLOL FUMARATE [Concomitant]
  11. NIFEDIPINE [Concomitant]
  12. FLUOXETINE [Concomitant]
  13. FOLBIC [Concomitant]
  14. POTASSIUM CHLORIDE [Concomitant]
  15. ASPIRIN [Concomitant]

REACTIONS (2)
  - Hot flush [Unknown]
  - Nasal congestion [Unknown]
